FAERS Safety Report 9409231 (Version 2)
Quarter: 2013Q3

REPORT INFORMATION
  Report Type: Report from Study
  Country: US (occurrence: US)
  Receive Date: 20130719
  Receipt Date: 20130806
  Transmission Date: 20140515
  Serious: Yes (Other)
  Sender: FDA-Public Use
  Company Number: US-ROCHE-1250157

PATIENT
  Sex: Female

DRUGS (1)
  1. AVASTIN [Suspect]
     Indication: AGE-RELATED MACULAR DEGENERATION
     Route: 050

REACTIONS (8)
  - Eyelid oedema [Unknown]
  - Eye swelling [Unknown]
  - Visual impairment [Unknown]
  - Eyelid disorder [Not Recovered/Not Resolved]
  - Eye pain [Recovered/Resolved]
  - Discomfort [Recovered/Resolved]
  - Skin exfoliation [Not Recovered/Not Resolved]
  - Abnormal sensation in eye [Not Recovered/Not Resolved]
